FAERS Safety Report 6165794-6 (Version None)
Quarter: 2009Q2

REPORT INFORMATION
  Report Type: 
  Country: None (occurrence: None)
  Receive Date: 20090423
  Receipt Date: 20090415
  Transmission Date: 20091009
  Serious: Yes (Other)
  Sender: FDA-Public Use
  Company Number: GR-GILEAD-E2B_00000328

PATIENT
  Age: 30 Year
  Sex: Male

DRUGS (2)
  1. AMBRISENTAN [Suspect]
     Indication: PULMONARY HYPERTENSION
     Route: 048
  2. DEFERIPRONE [Suspect]
     Indication: IRON OVERLOAD

REACTIONS (1)
  - NEUTROPENIA [None]
